FAERS Safety Report 10273965 (Version 1)
Quarter: 2014Q2

REPORT INFORMATION
  Report Type: Spontaneous
  Country: US (occurrence: None)
  Receive Date: 20140630
  Receipt Date: 20140630
  Transmission Date: 20141212
  Serious: No
  Sender: FDA-Public Use
  Company Number: None

PATIENT
  Age: 37 Year
  Sex: Female

DRUGS (1)
  1. ENBREL SURECLICK [Suspect]
     Indication: RHEUMATOID ARTHRITIS
     Dosage: 50MG?WEEKLY?SQ
     Dates: start: 20140528, end: 20140601

REACTIONS (3)
  - Oropharyngeal pain [None]
  - Rash [None]
  - Pharyngeal oedema [None]
